FAERS Safety Report 6920898-2 (Version None)
Quarter: 2010Q3

REPORT INFORMATION
  Report Type: 
  Country: None (occurrence: None)
  Receive Date: 20100812
  Receipt Date: 20100802
  Transmission Date: 20110219
  Serious: Yes (Other)
  Sender: FDA-Public Use
  Company Number: US-ABBOTT-10P-163-0660700-00

PATIENT
  Sex: Male

DRUGS (18)
  1. NORVIR [Suspect]
     Indication: PRODUCT USED FOR UNKNOWN INDICATION
     Route: 048
  2. LEXAPRO [Suspect]
     Indication: PRODUCT USED FOR UNKNOWN INDICATION
     Route: 048
  3. FELDENE [Interacting]
     Indication: PRODUCT USED FOR UNKNOWN INDICATION
  4. GABAPENTIN [Interacting]
     Indication: PRODUCT USED FOR UNKNOWN INDICATION
  5. FOLIC ACID [Interacting]
     Indication: PRODUCT USED FOR UNKNOWN INDICATION
  6. DIGOXIN [Interacting]
     Indication: PRODUCT USED FOR UNKNOWN INDICATION
  7. ATENOLOL [Interacting]
     Indication: PRODUCT USED FOR UNKNOWN INDICATION
  8. ZYRTEC [Interacting]
     Indication: PRODUCT USED FOR UNKNOWN INDICATION
     Route: 048
  9. TRAMADOL HCL [Interacting]
     Indication: PRODUCT USED FOR UNKNOWN INDICATION
  10. FERROUS SULFATE [Interacting]
     Indication: PRODUCT USED FOR UNKNOWN INDICATION
  11. DIPHENHYDRAMINE [Interacting]
     Indication: PRODUCT USED FOR UNKNOWN INDICATION
  12. LOPERAMIDE [Interacting]
     Indication: PRODUCT USED FOR UNKNOWN INDICATION
  13. ATROVENT [Interacting]
     Indication: PRODUCT USED FOR UNKNOWN INDICATION
  14. COZAAR [Interacting]
     Indication: PRODUCT USED FOR UNKNOWN INDICATION
     Route: 048
  15. EPOGEN [Interacting]
     Indication: PRODUCT USED FOR UNKNOWN INDICATION
  16. ABILIFY [Interacting]
     Indication: PRODUCT USED FOR UNKNOWN INDICATION
  17. CARVEDILOL [Interacting]
     Indication: PRODUCT USED FOR UNKNOWN INDICATION
  18. SEROQUEL [Interacting]
     Indication: PRODUCT USED FOR UNKNOWN INDICATION

REACTIONS (2)
  - DRUG INTERACTION [None]
  - RASH [None]
